FAERS Safety Report 13734565 (Version 5)
Quarter: 2018Q1

REPORT INFORMATION
  Report Type: Report from Study
  Country: JP (occurrence: JP)
  Receive Date: 20170709
  Receipt Date: 20180213
  Transmission Date: 20180508
  Serious: Yes (Hospitalization, Other)
  Sender: FDA-Public Use
  Company Number: PHJP2017JP022019

PATIENT
  Age: 69 Year
  Sex: Male
  Weight: 47 kg

DRUGS (12)
  1. COSENTYX [Suspect]
     Active Substance: SECUKINUMAB
     Dosage: 150 MG, QW
     Route: 058
     Dates: start: 20170321
  2. PICOSULFATE [Concomitant]
     Active Substance: SODIUM PICOSULFATE
     Indication: CONSTIPATION
     Dosage: UNK UNK, PRN
     Route: 048
     Dates: start: 20170316
  3. FLUCONAZOLE. [Concomitant]
     Active Substance: FLUCONAZOLE
     Indication: ORAL CANDIDIASIS
     Dosage: 100 MG, UNK
     Route: 048
     Dates: start: 20170323, end: 20170414
  4. ANAEMETRO [Concomitant]
     Active Substance: METRONIDAZOLE
     Indication: PROPHYLAXIS
     Dosage: 1500 MG, UNK
     Route: 042
     Dates: start: 20170301, end: 20170318
  5. LANSOPRAZOLE. [Concomitant]
     Active Substance: LANSOPRAZOLE
     Indication: GASTRITIS PROPHYLAXIS
     Dosage: 15 MG, UNK
     Route: 048
     Dates: start: 20170325
  6. COSENTYX [Suspect]
     Active Substance: SECUKINUMAB
     Dosage: 150 MG, QW
     Route: 058
     Dates: start: 20170328
  7. TALION [Concomitant]
     Active Substance: BEPOTASTINE
     Indication: PUSTULAR PSORIASIS
     Dosage: 20 MG, UNK
     Route: 048
     Dates: start: 20170221
  8. COSENTYX [Suspect]
     Active Substance: SECUKINUMAB
     Dosage: 150 MG, QW
     Route: 058
     Dates: start: 20170404, end: 20170404
  9. CORTRIL [Suspect]
     Active Substance: HYDROCORTISONE
     Indication: ADRENAL INSUFFICIENCY
     Dosage: 25 MG, UNK
     Route: 048
     Dates: start: 20170325, end: 20170630
  10. COSENTYX [Suspect]
     Active Substance: SECUKINUMAB
     Indication: PUSTULAR PSORIASIS
     Dosage: 150 MG, QW
     Route: 058
     Dates: start: 20170307
  11. CEFTRIAXONE. [Concomitant]
     Active Substance: CEFTRIAXONE
     Indication: SUTURE RUPTURE
     Dosage: 2 G, UNK
     Route: 042
     Dates: start: 20170301, end: 20170318
  12. ANAEMETRO [Concomitant]
     Active Substance: METRONIDAZOLE
     Indication: SUTURE RUPTURE

REACTIONS (3)
  - Urinary retention [Recovered/Resolved]
  - Sepsis [Recovered/Resolved]
  - Urinary tract infection [Recovered/Resolved]

NARRATIVE: CASE EVENT DATE: 20170313
